FAERS Safety Report 8343522-3 (Version None)
Quarter: 2012Q2

REPORT INFORMATION
  Report Type: 
  Country: None (occurrence: None)
  Receive Date: 20120508
  Receipt Date: 20120428
  Transmission Date: 20120825
  Serious: Yes (Death, Hospitalization, Other)
  Sender: FDA-Public Use
  Company Number: ES-CELGENEUS-144-50794-12013009

PATIENT
  Weight: 92 kg

DRUGS (1)
  1. VIDAZA [Suspect]
     Dosage: 150 MILLIGRAM
     Route: 065
     Dates: start: 20100809, end: 20110124

REACTIONS (2)
  - SEPSIS [None]
  - ABDOMINAL WALL HAEMATOMA [None]
